FAERS Safety Report 18745710 (Version 1)
Quarter: 2021Q1

REPORT INFORMATION
  Report Type: Spontaneous
  Country: US (occurrence: US)
  Receive Date: 20210114
  Receipt Date: 20210114
  Transmission Date: 20210419
  Serious: No
  Sender: FDA-Public Use
  Company Number: None

PATIENT
  Age: 17 Year
  Sex: Female
  Weight: 68.04 kg

DRUGS (1)
  1. METHYLPHENIDATE HCL ER 36MG [Suspect]
     Active Substance: METHYLPHENIDATE HYDROCHLORIDE
     Indication: ATTENTION DEFICIT HYPERACTIVITY DISORDER
     Dosage: ONCE A DAY
     Route: 048
     Dates: start: 202010, end: 202012

REACTIONS (3)
  - Product substitution issue [None]
  - Agitation [None]
  - Abnormal behaviour [None]
